FAERS Safety Report 13748699 (Version 2)
Quarter: 2017Q4

REPORT INFORMATION
  Report Type: Spontaneous
  Country: US (occurrence: US)
  Receive Date: 20170713
  Receipt Date: 20171012
  Transmission Date: 20180320
  Serious: No
  Sender: FDA-Public Use
  Company Number: US-APOTEX-2017AP012704

PATIENT
  Sex: Male

DRUGS (1)
  1. MOMETASONE FUROATE NASAL SPRAY [Suspect]
     Active Substance: MOMETASONE FUROATE
     Indication: PRODUCT USED FOR UNKNOWN INDICATION
     Route: 065

REACTIONS (1)
  - Product taste abnormal [Unknown]
